FAERS Safety Report 8790334 (Version 1)
Quarter: 2012Q4

REPORT INFORMATION
  Report Type: 
  Country: US (occurrence: US)
  Receive Date: 20120917
  Receipt Date: 20120917
  Transmission Date: 20130627
  Serious: Yes (Other)
  Sender: FDA-Public Use
  Company Number: US-GENZYME-FABR-1002731

PATIENT
  Sex: Male

DRUGS (2)
  1. FABRAZYME [Suspect]
     Indication: FABRY^S DISEASE
     Dosage: UNK
     Route: 042
     Dates: start: 201205
  2. FABRAZYME [Suspect]
     Dosage: UNK
     Route: 042
     Dates: start: 200312

REACTIONS (8)
  - Foot fracture [Unknown]
  - Foot fracture [Unknown]
  - Foot fracture [Unknown]
  - Renal transplant [Unknown]
  - Hyperhidrosis [Unknown]
  - Dysgeusia [Unknown]
  - Colour blindness acquired [Unknown]
  - Bone density decreased [Unknown]
